FAERS Safety Report 6869860-9 (Version None)
Quarter: 2010Q3

REPORT INFORMATION
  Report Type: 
  Country: None (occurrence: None)
  Receive Date: 20100722
  Receipt Date: 20080826
  Transmission Date: 20110219
  Serious: Yes (Other)
  Sender: FDA-Public Use
  Company Number: US-PFIZER INC-2008072168

PATIENT
  Sex: Female
  Weight: 63.636 kg

DRUGS (1)
  1. CHANTIX [Suspect]
     Indication: SMOKING CESSATION THERAPY
     Dates: start: 20050101

REACTIONS (5)
  - DEPRESSION [None]
  - DRY EYE [None]
  - PAROSMIA [None]
  - WEIGHT DECREASED [None]
  - WEIGHT INCREASED [None]
